FAERS Safety Report 11836805 (Version 1)
Quarter: 2015Q4

REPORT INFORMATION
  Report Type: Spontaneous
  Country: US (occurrence: None)
  Receive Date: 20151214
  Receipt Date: 20151214
  Transmission Date: 20160305
  Serious: No
  Sender: FDA-Public Use
  Company Number: None

PATIENT
  Age: 60 Year
  Sex: Male

DRUGS (1)
  1. NEXAVAR [Suspect]
     Active Substance: SORAFENIB
     Indication: HEPATIC CANCER
     Dosage: NOT SPECIFIED
     Route: 048
     Dates: start: 20150723

REACTIONS (4)
  - Tongue blistering [None]
  - Hyperkeratosis [None]
  - Skin fissures [None]
  - Oral mucosal blistering [None]
